FAERS Safety Report 9466084 (Version 2)
Quarter: 2015Q2

REPORT INFORMATION
  Report Type: Spontaneous
  Country: US (occurrence: US)
  Receive Date: 20130820
  Receipt Date: 20150609
  Transmission Date: 20150821
  Serious: Yes (Congenital Anomaly, Other)
  Sender: FDA-Public Use
  Company Number: US-ELI_LILLY_AND_COMPANY-US201308004448

PATIENT

DRUGS (2)
  1. PROZAC [Suspect]
     Active Substance: FLUOXETINE HYDROCHLORIDE
     Indication: DEPRESSION
     Dosage: 20 MG, UNKNOWN
     Route: 064
  2. PROGESTERONE. [Concomitant]
     Active Substance: PROGESTERONE

REACTIONS (7)
  - Foetal exposure during pregnancy [Recovered/Resolved]
  - Mitral valve prolapse [Unknown]
  - Cerebral palsy [Unknown]
  - Congenital cardiovascular anomaly [Unknown]
  - Respiratory distress [Unknown]
  - Premature baby [Unknown]
  - Seizure [Unknown]
